FAERS Safety Report 6748395-8 (Version None)
Quarter: 2010Q2

REPORT INFORMATION
  Report Type: 
  Country: None (occurrence: None)
  Receive Date: 20100601
  Receipt Date: 20100517
  Transmission Date: 20101027
  Serious: Yes (Other)
  Sender: FDA-Public Use
  Company Number: US-ASTRAZENECA-2007UW08911

PATIENT
  Age: 477 Month
  Sex: Male

DRUGS (7)
  1. SEROQUEL [Suspect]
     Route: 048
     Dates: start: 20020514, end: 20030515
  2. SEROQUEL [Suspect]
     Route: 048
     Dates: start: 20021227, end: 20031228
  3. SEROQUEL [Suspect]
     Route: 048
     Dates: start: 20021227, end: 20031228
  4. SEROQUEL [Suspect]
     Route: 048
     Dates: start: 20041223, end: 20041228
  5. SEROQUEL [Suspect]
     Route: 048
     Dates: start: 20041223, end: 20041228
  6. SEROQUEL [Suspect]
     Route: 048
     Dates: start: 20050317, end: 20050509
  7. SEROQUEL [Suspect]
     Route: 048
     Dates: start: 20050317, end: 20050509

REACTIONS (3)
  - NEUROPATHY PERIPHERAL [None]
  - TYPE 1 DIABETES MELLITUS [None]
  - TYPE 2 DIABETES MELLITUS [None]
